FAERS Safety Report 6389486-3 (Version None)
Quarter: 2009Q4

REPORT INFORMATION
  Report Type: 
  Country: None (occurrence: None)
  Receive Date: 20091003
  Receipt Date: 20090928
  Transmission Date: 20100525
  Serious: Yes (Hospitalization)
  Sender: FDA-Public Use
  Company Number: 1000009126

PATIENT
  Age: 75 Year
  Sex: Female

DRUGS (8)
  1. ARMOUR THYROID (THYROTD) (60 MILLIGRAM, TABLETS) [Suspect]
     Indication: HYPOTHYROIDISM
     Dosage: 180 MG, ( 180 MG 1 IN 1 D),ORAL; 60 MG (60 MG, 1 IN 1 D), ORAL
     Route: 048
     Dates: start: 19610101
  2. TENORMIN [Concomitant]
  3. ACCUPRIL [Concomitant]
  4. TEKTURNA [Concomitant]
  5. HYDROCHLOROTHIAZIDE [Concomitant]
  6. LIPITOR [Concomitant]
  7. ASPIRIN [Concomitant]
  8. TRANXENE [Concomitant]

REACTIONS (1)
  - MYOCARDIAL INFARCTION [None]
